FAERS Safety Report 7879934-1 (Version None)
Quarter: 2011Q4

REPORT INFORMATION
  Report Type: 
  Country: None (occurrence: None)
  Receive Date: 20111101
  Receipt Date: 20111027
  Transmission Date: 20120403
  Serious: Yes (Hospitalization, Other)
  Sender: FDA-Public Use
  Company Number: FR-PFIZER INC-2011261866

PATIENT
  Age: 74 Year
  Sex: Female

DRUGS (8)
  1. DEPAKOTE [Suspect]
     Dosage: 500 MG, 2X/DAY
     Route: 048
  2. XANAX [Suspect]
     Dosage: 0.5 MG, 1X/DAY
     Route: 048
  3. HALDOL [Suspect]
  4. NEXIUM [Suspect]
     Dosage: 20 MG, 1X/DAY
     Route: 048
  5. LISINOPRIL [Suspect]
     Dosage: 1 DF, 1X/DAY
     Route: 048
  6. ESIDRIX [Suspect]
     Dosage: 12.5 MG, 1X/DAY
     Route: 048
  7. LORAZEPAM [Suspect]
     Dosage: 2.5 MG, 2X/DAY
     Route: 048
  8. LEPTICUR [Suspect]
     Dosage: 10 MG, 2X/DAY
     Route: 048

REACTIONS (5)
  - HYPOTHERMIA [None]
  - ESCHERICHIA TEST POSITIVE [None]
  - NUCLEAR MAGNETIC RESONANCE IMAGING ABNORMAL [None]
  - FALL [None]
  - BRADYCARDIA [None]
